FAERS Safety Report 5323462-4 (Version None)
Quarter: 2007Q2

REPORT INFORMATION
  Report Type: 
  Country: None (occurrence: None)
  Receive Date: 20070514
  Receipt Date: 20070509
  Transmission Date: 20071010
  Serious: Yes (Disabling, Other)
  Sender: FDA-Public Use
  Company Number: PHFR2007GB01555

PATIENT
  Sex: Male

DRUGS (2)
  1. CLOZARIL [Suspect]
     Dosage: 500 MG, QD
     Route: 048
     Dates: start: 20040601, end: 20070323
  2. ABILIFY [Concomitant]
     Dosage: 15 MG, QD
     Route: 048
     Dates: start: 20070322

REACTIONS (2)
  - GAIT DISTURBANCE [None]
  - MUSCULAR WEAKNESS [None]
